FAERS Safety Report 5451127-7 (Version None)
Quarter: 2007Q3

REPORT INFORMATION
  Report Type: 
  Country: None (occurrence: None)
  Receive Date: 20070913
  Receipt Date: 20070717
  Transmission Date: 20080115
  Serious: Yes (Life-Threatening, Hospitalization, Other)
  Sender: FDA-Public Use
  Company Number: US-NOVOPROD-264647

PATIENT

DRUGS (8)
  1. NOVOLOG MIX 70/30 [Suspect]
     Indication: INSULIN-REQUIRING TYPE II DIABETES MELLITUS
     Dosage: 70 IU, QD
     Route: 058
     Dates: start: 20070401, end: 20070501
  2. NOVOLOG MIX 70/30 [Suspect]
     Dosage: 78 IU, QD
     Route: 058
     Dates: start: 20070501
  3. LASIX [Concomitant]
     Indication: FLUID RETENTION
     Route: 048
     Dates: start: 19980101
  4. COREG [Concomitant]
     Indication: HYPERTENSION
     Route: 048
     Dates: start: 19980101
  5. DIGOXIN                            /00545901/ [Concomitant]
     Indication: CARDIAC DISORDER
     Route: 048
     Dates: start: 19980101
  6. AVAPRO [Concomitant]
     Indication: ILL-DEFINED DISORDER
     Route: 048
     Dates: start: 19980101
  7. FINASTERIDE [Concomitant]
     Indication: PROPHYLAXIS
     Route: 048
     Dates: start: 20020101
  8. TRICOR                             /00090101/ [Concomitant]
     Indication: ILL-DEFINED DISORDER
     Dosage: UNK, UNK
     Route: 048

REACTIONS (3)
  - BLOOD GLUCOSE INCREASED [None]
  - DEHYDRATION [None]
  - HYPOTENSION [None]
